FAERS Safety Report 25015103 (Version 1)
Quarter: 2025Q1

REPORT INFORMATION
  Report Type: Spontaneous
  Country: CN (occurrence: CN)
  Receive Date: 20250226
  Receipt Date: 20250226
  Transmission Date: 20250408
  Serious: Yes (Other)
  Sender: PFIZER
  Company Number: CN-PFIZER INC-PV202500022690

PATIENT
  Age: 61 Year
  Sex: Female

DRUGS (1)
  1. SUNITINIB MALATE [Suspect]
     Active Substance: SUNITINIB MALATE
     Indication: Gastrointestinal stromal tumour

REACTIONS (1)
  - Renal-limited thrombotic microangiopathy [Unknown]
